FAERS Safety Report 15887291 (Version 7)
Quarter: 2021Q4

REPORT INFORMATION
  Report Type: Report from Study
  Country: US (occurrence: None)
  Receive Date: 20190130
  Receipt Date: 20211218
  Transmission Date: 20220304
  Serious: Yes (Hospitalization)
  Sender: FDA-Public Use
  Company Number: US-ROCHE-2234787

PATIENT
  Age: 55 Year
  Sex: Male

DRUGS (15)
  1. ATEZOLIZUMAB [Suspect]
     Active Substance: ATEZOLIZUMAB
     Indication: Non-small cell lung cancer
     Dosage: DATE OF LAST DOSE OF ATEZOLIZUMAB PRIOR TO EVENT ONSET WAS 26/OCT/2018?LAST DOSE ADMINISTERED AS 120
     Route: 041
     Dates: start: 20180823
  2. CARBOPLATIN [Suspect]
     Active Substance: CARBOPLATIN
     Indication: Non-small cell lung cancer
     Dosage: MOST RECENT DOSE PRIOR TO EVENT ONSET: 17/DEC/2018
     Route: 042
     Dates: start: 20181119
  3. PACLITAXEL [Suspect]
     Active Substance: PACLITAXEL
     Indication: Non-small cell lung cancer
     Dosage: MOST RECENT DOSE PRIOR TO EVENT ONSET: 17/DEC/2018
     Route: 042
     Dates: start: 20181119
  4. TYLENOL [Concomitant]
     Active Substance: ACETAMINOPHEN
  5. ALBUTEROL SULFATE [Concomitant]
     Active Substance: ALBUTEROL SULFATE
     Indication: Wheezing
     Dosage: 2 PUFFS
     Route: 055
  6. ALBUTEROL SULFATE [Concomitant]
     Active Substance: ALBUTEROL SULFATE
     Indication: Cough
  7. TESSALON [Concomitant]
     Active Substance: BENZONATATE
     Indication: Cough
     Route: 048
  8. DECADRON [Concomitant]
     Active Substance: DEXAMETHASONE
     Route: 048
  9. VALIUM [Concomitant]
     Active Substance: DIAZEPAM
     Indication: Anxiety
     Route: 048
  10. ATIVAN [Concomitant]
     Active Substance: LORAZEPAM
     Indication: Anxiety
     Route: 048
  11. ATIVAN [Concomitant]
     Active Substance: LORAZEPAM
     Indication: Nausea
  12. ATIVAN [Concomitant]
     Active Substance: LORAZEPAM
     Indication: Vomiting
  13. ZOFRAN [Concomitant]
     Active Substance: ONDANSETRON HYDROCHLORIDE
     Route: 048
  14. COMPAZINE [Concomitant]
     Active Substance: PROCHLORPERAZINE MALEATE
     Indication: Nausea
     Route: 048
  15. COMPAZINE [Concomitant]
     Active Substance: PROCHLORPERAZINE MALEATE
     Indication: Vomiting

REACTIONS (5)
  - Pyrexia [Recovered/Resolved]
  - Hypersensitivity [Recovered/Resolved]
  - Pain [Unknown]
  - Tachycardia [Unknown]
  - Blood lactic acid increased [Recovering/Resolving]

NARRATIVE: CASE EVENT DATE: 20181210
